FAERS Safety Report 5469616-8 (Version None)
Quarter: 2007Q3

REPORT INFORMATION
  Report Type: 
  Country: None (occurrence: None)
  Receive Date: 20070925
  Receipt Date: 20070925
  Transmission Date: 20080115
  Serious: Yes (Life-Threatening, Hospitalization)
  Sender: FDA-Public Use
  Company Number: None

PATIENT
  Age: 68 Year
  Sex: Male
  Weight: 87.7 kg

DRUGS (1)
  1. AVASTIN [Suspect]
     Indication: COLON CANCER
     Dosage: 450 MG -5 MG/KG- Q 14 DAYS IV DRIP
     Route: 041
     Dates: start: 20061219, end: 20070904

REACTIONS (7)
  - BRONCHIAL FISTULA [None]
  - CATHETER RELATED COMPLICATION [None]
  - COUGH [None]
  - HYPOXIA [None]
  - INFUSION RELATED REACTION [None]
  - LUNG INFILTRATION [None]
  - OXYGEN SATURATION DECREASED [None]
